FAERS Safety Report 25839691 (Version 2)
Quarter: 2025Q4

REPORT INFORMATION
  Report Type: Spontaneous
  Country: US (occurrence: US)
  Receive Date: 20250924
  Receipt Date: 20251013
  Transmission Date: 20260118
  Serious: Yes (Hospitalization, Other)
  Sender: TEVA
  Company Number: US-TEVA-VS-3374740

PATIENT
  Age: 83 Year
  Sex: Female

DRUGS (6)
  1. DONEPEZIL [Suspect]
     Active Substance: DONEPEZIL
     Indication: Memory impairment
     Route: 065
  2. DIVALPROEX SODIUM [Suspect]
     Active Substance: DIVALPROEX SODIUM
     Indication: Drug therapy
     Dosage: EXTENDED RELEASE
     Route: 065
  3. BUSPIRONE [Suspect]
     Active Substance: BUSPIRONE HYDROCHLORIDE
     Indication: Drug therapy
     Route: 065
  4. RISPERIDONE [Suspect]
     Active Substance: RISPERIDONE
     Indication: Drug therapy
     Dosage: AS NEEDED
     Route: 048
  5. TRAZODONE [Suspect]
     Active Substance: TRAZODONE HYDROCHLORIDE
     Indication: Insomnia
     Dosage: AT BEDTIME
     Route: 065
  6. CITALOPRAM [Suspect]
     Active Substance: CITALOPRAM
     Indication: Depression
     Route: 065

REACTIONS (2)
  - Delirium [Unknown]
  - Hyperammonaemia [Unknown]
